FAERS Safety Report 13117180 (Version 3)
Quarter: 2017Q1

REPORT INFORMATION
  Report Type: Spontaneous
  Country: US (occurrence: US)
  Receive Date: 20170116
  Receipt Date: 20170207
  Transmission Date: 20170428
  Serious: Yes (Hospitalization)
  Sender: FDA-Public Use
  Company Number: US-UNITED THERAPEUTICS-UNT-2017-000285

PATIENT
  Age: 72 Year
  Sex: Male
  Weight: 112.47 kg

DRUGS (2)
  1. ELIQUIS [Concomitant]
     Active Substance: APIXABAN
     Indication: PRODUCT USED FOR UNKNOWN INDICATION
  2. REMODULIN [Suspect]
     Active Substance: TREPROSTINIL
     Indication: PULMONARY ARTERIAL HYPERTENSION
     Dosage: 0.040 ?G/KG, CONTINUING
     Route: 041
     Dates: start: 20150307

REACTIONS (6)
  - Chest pain [Recovering/Resolving]
  - Fluid retention [Recovering/Resolving]
  - Renal disorder [Recovering/Resolving]
  - Dyspnoea [Recovering/Resolving]
  - Infection [Recovering/Resolving]
  - Fluid overload [Unknown]

NARRATIVE: CASE EVENT DATE: 201701
